FAERS Safety Report 20153196 (Version 6)
Quarter: 2022Q2

REPORT INFORMATION
  Report Type: Spontaneous
  Country: CZ (occurrence: CZ)
  Receive Date: 20211206
  Receipt Date: 20220603
  Transmission Date: 20220720
  Serious: Yes (Hospitalization, Other)
  Sender: FDA-Public Use
  Company Number: CZ-002147023-NVSC2021CZ265403

PATIENT
  Age: 59 Year
  Sex: Female
  Weight: 64.9 kg

DRUGS (25)
  1. OLANZAPINE [Suspect]
     Active Substance: OLANZAPINE
     Indication: Schizophrenia
     Dosage: 10 MG, UNKNOWN
     Route: 065
  2. OLANZAPINE [Suspect]
     Active Substance: OLANZAPINE
     Indication: Antipsychotic therapy
  3. QUETIAPINE [Suspect]
     Active Substance: QUETIAPINE
     Indication: Schizophrenia
     Dosage: 400 MG, UNKNOWN
     Route: 065
  4. QUETIAPINE [Suspect]
     Active Substance: QUETIAPINE
     Indication: Antipsychotic therapy
  5. ARIPIPRAZOLE [Suspect]
     Active Substance: ARIPIPRAZOLE
     Indication: Schizophrenia
     Dosage: 15 MG, UNKNOWN
     Route: 065
  6. ARIPIPRAZOLE [Suspect]
     Active Substance: ARIPIPRAZOLE
     Indication: Antipsychotic therapy
  7. RISPERIDONE [Suspect]
     Active Substance: RISPERIDONE
     Indication: Schizophrenia
     Dosage: 100 MG, WEEKLY (1/W)
     Route: 065
  8. RISPERIDONE [Suspect]
     Active Substance: RISPERIDONE
     Indication: Antipsychotic therapy
     Dosage: 4 MG, WEEKLY (1/W)
     Route: 065
  9. RISPERIDONE [Suspect]
     Active Substance: RISPERIDONE
     Dosage: 30 MG, WEEKLY (1/W)
     Route: 065
  10. RISPERIDONE [Suspect]
     Active Substance: RISPERIDONE
     Dosage: UNK, UNKNOWN
     Route: 030
  11. HALOPERIDOL [Suspect]
     Active Substance: HALOPERIDOL
     Indication: Schizophrenia
     Dosage: UNK, UNKNOWN
     Route: 065
  12. HALOPERIDOL [Suspect]
     Active Substance: HALOPERIDOL
     Indication: Antipsychotic therapy
     Dosage: 4 MG, UNKNOWN
     Route: 065
  13. SERTINDOLE [Suspect]
     Active Substance: SERTINDOLE
     Indication: Schizophrenia
     Dosage: UNK, UNKNOWN
     Route: 065
  14. SERTINDOLE [Suspect]
     Active Substance: SERTINDOLE
     Indication: Antipsychotic therapy
  15. LEVOMEPROMAZINE [Suspect]
     Active Substance: LEVOMEPROMAZINE
     Indication: Schizophrenia
     Dosage: UNK, UNKNOWN
     Route: 065
  16. LEVOMEPROMAZINE [Suspect]
     Active Substance: LEVOMEPROMAZINE
     Indication: Antipsychotic therapy
  17. PALIPERIDONE [Suspect]
     Active Substance: PALIPERIDONE
     Indication: Schizophrenia
     Dosage: 100 MG, WEEKLY (1/W)
     Route: 065
  18. PALIPERIDONE [Suspect]
     Active Substance: PALIPERIDONE
     Indication: Antipsychotic therapy
     Dosage: UNK, UNKNOWN
     Route: 030
  19. CLOZAPINE [Suspect]
     Active Substance: CLOZAPINE
     Indication: Schizophrenia
     Dosage: 300 MG, UNKNOWN
     Route: 065
  20. CLOZAPINE [Suspect]
     Active Substance: CLOZAPINE
     Indication: Antipsychotic therapy
     Dosage: 500 MG, UNKNOWN
     Route: 065
  21. BREXPIPRAZOLE [Suspect]
     Active Substance: BREXPIPRAZOLE
     Indication: Schizophrenia
     Dosage: 1 MG, DAILY
     Route: 065
  22. BREXPIPRAZOLE [Suspect]
     Active Substance: BREXPIPRAZOLE
     Indication: Antipsychotic therapy
     Dosage: 4 MG, DAILY
     Route: 065
  23. BREXPIPRAZOLE [Suspect]
     Active Substance: BREXPIPRAZOLE
     Dosage: 111 MG, DAILY
     Route: 065
  24. FLUPENTIXOL [Suspect]
     Active Substance: FLUPENTIXOL
     Indication: Antipsychotic therapy
     Dosage: UNK, UNKNOWN
     Route: 030
  25. LURASIDONE [Concomitant]
     Active Substance: LURASIDONE
     Indication: Product used for unknown indication
     Dosage: 74 MG, DAILY

REACTIONS (14)
  - Treatment noncompliance [Recovered/Resolved]
  - Anxiety [Unknown]
  - Insomnia [Unknown]
  - Lethargy [Unknown]
  - Depression [Unknown]
  - Sedation complication [Recovered/Resolved]
  - Hypotension [Recovered/Resolved]
  - Tremor [Unknown]
  - Schizophrenia [Recovering/Resolving]
  - Hyperprolactinaemia [Recovering/Resolving]
  - Therapy non-responder [Unknown]
  - Therapeutic product effect incomplete [Unknown]
  - Weight increased [Recovered/Resolved]
  - Fatigue [Unknown]

NARRATIVE: CASE EVENT DATE: 20090701
